FAERS Safety Report 7263458-9 (Version None)
Quarter: 2011Q1

REPORT INFORMATION
  Report Type: 
  Country: None (occurrence: None)
  Receive Date: 20110130
  Receipt Date: 20101203
  Transmission Date: 20110831
  Serious: No
  Sender: FDA-Public Use
  Company Number: US-ABBOTT-10P-163-0689327-00

PATIENT
  Sex: Female
  Weight: 56.75 kg

DRUGS (24)
  1. LOTEMAX [Concomitant]
     Indication: IRITIS
  2. DEPO-ESTRADIOL [Concomitant]
     Indication: HYSTERECTOMY
  3. VIT B 12 [Concomitant]
     Indication: ASTHENIA
     Route: 050
  4. VOLTARIN [Concomitant]
     Indication: PAIN
  5. METHOTREXATE [Concomitant]
     Indication: RHEUMATOID ARTHRITIS
  6. FUROSEMIDE [Concomitant]
     Indication: JOINT SWELLING
  7. HUMIRA [Suspect]
     Indication: RHEUMATOID ARTHRITIS
  8. CALCIUM [Concomitant]
     Indication: PRODUCT USED FOR UNKNOWN INDICATION
  9. WELLBUTRIN [Concomitant]
     Indication: DEPRESSION
  10. VALIUM [Concomitant]
     Indication: STRESS
  11. EVOXAC [Concomitant]
     Indication: IRITIS
  12. MOTRIN [Concomitant]
     Indication: MIGRAINE
  13. FUROSEMIDE [Concomitant]
     Indication: OEDEMA PERIPHERAL
  14. FOLIC ACID [Concomitant]
     Indication: PRODUCT USED FOR UNKNOWN INDICATION
  15. TRAZODONE HCL [Concomitant]
     Indication: INSOMNIA
  16. LIDOCAINE HYDROCHLORIDE IN PLASTIC CONTAINER [Concomitant]
     Indication: PAIN
     Route: 061
  17. CELLCEPT [Concomitant]
     Indication: PRODUCT USED FOR UNKNOWN INDICATION
  18. POTASSIUM CHLORIDE [Concomitant]
     Indication: PRODUCT USED FOR UNKNOWN INDICATION
  19. RESTASIS [Concomitant]
     Indication: IRITIS
  20. HUMIRA [Suspect]
     Indication: RHEUMATOID ARTHRITIS
     Dates: start: 20101001, end: 20101119
  21. SYNTHROID [Concomitant]
     Indication: HYPOTHYROIDISM
  22. RITALIN [Concomitant]
     Indication: ATTENTION DEFICIT/HYPERACTIVITY DISORDER
  23. TYLENOL-500 [Concomitant]
     Indication: MIGRAINE
  24. VITAMIN D [Concomitant]
     Indication: PRODUCT USED FOR UNKNOWN INDICATION

REACTIONS (2)
  - INJECTION SITE PAIN [None]
  - DRUG INEFFECTIVE [None]
